FAERS Safety Report 21395405 (Version 1)
Quarter: 2022Q3

REPORT INFORMATION
  Report Type: Spontaneous
  Country: US (occurrence: US)
  Receive Date: 20220930
  Receipt Date: 20220930
  Transmission Date: 20221026
  Serious: No
  Sender: FDA-Public Use
  Company Number: ENDG21-05858

PATIENT
  Sex: Female

DRUGS (4)
  1. GLYCOPYRROLATE [Suspect]
     Active Substance: GLYCOPYRROLATE
     Indication: Hyperhidrosis
     Dosage: 3 DF, TID
     Route: 065
     Dates: start: 2017
  2. GLYCOPYRROLATE [Suspect]
     Active Substance: GLYCOPYRROLATE
     Dosage: 3 DF, TID
     Route: 065
     Dates: start: 2021
  3. GLYCOPYRROLATE [Suspect]
     Active Substance: GLYCOPYRROLATE
     Dosage: 3 DF, TID
     Route: 065
     Dates: start: 2021
  4. GLYCOPYRROLATE [Suspect]
     Active Substance: GLYCOPYRROLATE
     Dosage: 3 DF, TID
     Route: 065
     Dates: start: 2021

REACTIONS (4)
  - Drug tolerance [Not Recovered/Not Resolved]
  - Drug ineffective for unapproved indication [Not Recovered/Not Resolved]
  - Off label use [Not Recovered/Not Resolved]
  - Product formulation issue [Unknown]

NARRATIVE: CASE EVENT DATE: 20170101
